FAERS Safety Report 24166054 (Version 1)
Quarter: 2024Q3

REPORT INFORMATION
  Report Type: Spontaneous
  Country: US (occurrence: US)
  Receive Date: 20240802
  Receipt Date: 20240802
  Transmission Date: 20241016
  Serious: Yes (Other)
  Sender: DR REDDYS
  Company Number: US-DRL-USA-LIT/USA/24/0011111

PATIENT
  Age: 51 Year
  Sex: Female

DRUGS (3)
  1. CYCLOSPORINE [Suspect]
     Active Substance: CYCLOSPORINE
     Indication: Acquired amegakaryocytic thrombocytopenia
  2. ELTROMBOPAG [Concomitant]
     Active Substance: ELTROMBOPAG
     Indication: Acquired amegakaryocytic thrombocytopenia
  3. ELTROMBOPAG [Concomitant]
     Active Substance: ELTROMBOPAG

REACTIONS (2)
  - Gastrointestinal toxicity [Unknown]
  - Product use in unapproved indication [Unknown]
